FAERS Safety Report 4435324-5 (Version None)
Quarter: 2004Q3

REPORT INFORMATION
  Report Type: 
  Country: None (occurrence: None)
  Receive Date: 20040827
  Receipt Date: 20040816
  Transmission Date: 20050211
  Serious: Yes (Other)
  Sender: FDA-Public Use
  Company Number: GB-JNJFOC-20040805045

PATIENT
  Sex: Female

DRUGS (18)
  1. HALOPERIDOL [Suspect]
     Indication: AGITATION
  2. ALFENTANIL [Suspect]
     Indication: SEDATION
  3. HL10 [Suspect]
     Indication: ACUTE RESPIRATORY DISTRESS SYNDROME
     Route: 007
  4. PROPOFOL [Suspect]
     Indication: SEDATION
  5. MIDAZOLAM HCL [Suspect]
     Indication: SEDATION
  6. CEFTRIAXONE [Concomitant]
     Indication: ANTI-INFECTIVE THERAPY
  7. RANITIDINE [Concomitant]
  8. HEPARIN [Concomitant]
     Indication: DEEP VENOUS THROMBOSIS PROPHYLAXIS
  9. ALBUTEROL SULFATE [Concomitant]
  10. ATRACURIUM BESYLATE [Concomitant]
  11. ADDIPHOS [Concomitant]
  12. ADDIPHOS [Concomitant]
  13. ADDIPHOS [Concomitant]
  14. ADDIPHOS [Concomitant]
     Indication: HYPOPHOSPHATAEMIA
  15. SANDO-K [Concomitant]
     Indication: HYPOKALAEMIA
  16. IBUPROFEN [Concomitant]
  17. COMBIVENT [Concomitant]
  18. COMBIVENT [Concomitant]

REACTIONS (3)
  - DRUG INTERACTION [None]
  - MEAN ARTERIAL PRESSURE DECREASED [None]
  - OXYGEN SATURATION DECREASED [None]
